FAERS Safety Report 15154642 (Version 1)
Quarter: 2018Q3

REPORT INFORMATION
  Report Type: Spontaneous
  Country: US (occurrence: US)
  Receive Date: 20180620
  Receipt Date: 20180620
  Transmission Date: 20181010
  Serious: Yes (Hospitalization)
  Sender: FDA-Public Use
  Company Number: None

PATIENT
  Age: 47 Year
  Sex: Female
  Weight: 51.75 kg

DRUGS (1)
  1. ROPIVACAINE [Suspect]
     Active Substance: ROPIVACAINE
     Indication: PAIN
     Route: 058
     Dates: start: 20180416, end: 20180416

REACTIONS (4)
  - Dyspnoea [None]
  - Hypoaesthesia oral [None]
  - Chest discomfort [None]
  - Presyncope [None]

NARRATIVE: CASE EVENT DATE: 20180416
